FAERS Safety Report 17036953 (Version 4)
Quarter: 2020Q4

REPORT INFORMATION
  Report Type: Spontaneous
  Country: CZ (occurrence: CZ)
  Receive Date: 20191115
  Receipt Date: 20201110
  Transmission Date: 20210113
  Serious: Yes (Death, Other)
  Sender: FDA-Public Use
  Company Number: CZ-PFIZER INC-2019488420

PATIENT
  Age: 32 Year
  Sex: Male

DRUGS (3)
  1. DEXAMED [DEXAMETHASONE SODIUM PHOSPHATE] [Suspect]
     Active Substance: DEXAMETHASONE SODIUM PHOSPHATE
     Indication: SEPTIC SHOCK
     Dosage: 16 MG, UNK
     Route: 042
  2. MERONEM [Suspect]
     Active Substance: MEROPENEM
     Indication: SEPTIC SHOCK
     Dosage: 1 G, 3X/DAY
     Route: 042
     Dates: start: 20170311
  3. CEFTRIAXON [Suspect]
     Active Substance: CEFTRIAXONE
     Indication: SEPTIC SHOCK
     Dosage: 4 G (2X 2 G)
     Route: 042
     Dates: start: 20170311

REACTIONS (2)
  - Condition aggravated [Fatal]
  - Septic shock [Fatal]

NARRATIVE: CASE EVENT DATE: 20170311
